FAERS Safety Report 8238710-0 (Version None)
Quarter: 2012Q1

REPORT INFORMATION
  Report Type: 
  Country: None (occurrence: None)
  Receive Date: 20120327
  Receipt Date: 20120316
  Transmission Date: 20120608
  Serious: Yes (Other)
  Sender: FDA-Public Use
  Company Number: PT-COVIDIEN/TYCO HEALTHCARE/MALLINCKRODT-T201201195

PATIENT
  Age: 60 Year
  Sex: Male

DRUGS (1)
  1. EXALGO [Suspect]
     Indication: CANCER PAIN
     Dosage: UNK
     Route: 048

REACTIONS (2)
  - PSYCHOTIC DISORDER [None]
  - DELUSION [None]
